FAERS Safety Report 8084110-6 (Version None)
Quarter: 2012Q1

REPORT INFORMATION
  Report Type: 
  Country: None (occurrence: None)
  Receive Date: 20120128
  Receipt Date: 20110128
  Transmission Date: 20120608
  Serious: No
  Sender: FDA-Public Use
  Company Number: US-ABBOTT-11P-163-0701104-00

PATIENT
  Age: 64 Year
  Sex: Male

DRUGS (4)
  1. HUMIRA [Suspect]
     Indication: PSORIASIS
     Dates: start: 20100101, end: 20101201
  2. ATENOLOL [Concomitant]
     Indication: TREMOR
  3. BENZONATATE [Concomitant]
     Indication: COUGH
  4. HUMIRA [Suspect]
     Dates: start: 20110120

REACTIONS (1)
  - PSORIASIS [None]
